FAERS Safety Report 9097333 (Version 1)
Quarter: 2013Q1

REPORT INFORMATION
  Report Type: Spontaneous
  Country: US (occurrence: US)
  Receive Date: 20130212
  Receipt Date: 20130212
  Transmission Date: 20140127
  Serious: Yes (Hospitalization, Other)
  Sender: FDA-Public Use
  Company Number: US-BAYER-2012-117567

PATIENT
  Age: 21 Year
  Sex: Female
  Weight: 99.77 kg

DRUGS (1)
  1. MIRENA [Suspect]
     Indication: CONTRACEPTION
     Dosage: 20 MCG/24HR, CONT
     Route: 015
     Dates: start: 201206, end: 201208

REACTIONS (3)
  - Uterine perforation [None]
  - Unevaluable event [None]
  - Pain [Recovering/Resolving]
